FAERS Safety Report 8056602-7 (Version None)
Quarter: 2012Q1

REPORT INFORMATION
  Report Type: 
  Country: None (occurrence: None)
  Receive Date: 20120119
  Receipt Date: 20120106
  Transmission Date: 20120608
  Serious: Yes (Hospitalization)
  Sender: FDA-Public Use
  Company Number: GB-MEDIMMUNE-MEDI-0014498

PATIENT

DRUGS (1)
  1. SYNAGIS [Suspect]

REACTIONS (2)
  - WHEEZING [None]
  - VIRAL INFECTION [None]
